FAERS Safety Report 6694294-X (Version None)
Quarter: 2010Q2

REPORT INFORMATION
  Report Type: 
  Country: None (occurrence: None)
  Receive Date: 20100423
  Receipt Date: 20100413
  Transmission Date: 20101027
  Serious: Yes (Other)
  Sender: FDA-Public Use
  Company Number: JP-GENZYME-FABR-1001314

PATIENT

DRUGS (1)
  1. FABRAZYME [Suspect]
     Indication: FABRY'S DISEASE
     Dosage: 35 MG, Q4W
     Route: 042
     Dates: start: 20100225

REACTIONS (2)
  - BLOOD CREATININE INCREASED [None]
  - BRAIN NATRIURETIC PEPTIDE INCREASED [None]
